FAERS Safety Report 5979566-6 (Version None)
Quarter: 2008Q4

REPORT INFORMATION
  Report Type: 
  Country: None (occurrence: None)
  Receive Date: 20081204
  Receipt Date: 20081125
  Transmission Date: 20090506
  Serious: Yes (Hospitalization)
  Sender: FDA-Public Use
  Company Number: FR-ELI_LILLY_AND_COMPANY-FR200811005549

PATIENT
  Sex: Male

DRUGS (8)
  1. ZYPREXA [Suspect]
     Dosage: 5 MG, DAILY (1/D)
     Route: 048
     Dates: end: 20080901
  2. ANAFRANIL [Concomitant]
     Dosage: 10 MG, 2/D
     Route: 048
     Dates: end: 20080901
  3. PRAZEPAM [Concomitant]
     Dosage: 10 MG, DAILY (1/D)
  4. TENORMIN [Concomitant]
     Dosage: 100 MG, DAILY (1/D)
  5. KARDEGIC [Concomitant]
     Dosage: 75 MG, DAILY (1/D)
  6. MOBIC [Concomitant]
     Dosage: 15 MG, DAILY (1/D)
  7. DOLIPRANE [Concomitant]
     Dosage: 1000 MG, 4/D
  8. RABEPRAZOLE SODIUM [Concomitant]
     Dosage: 20 MG, DAILY (1/D)

REACTIONS (3)
  - CARDIOMYOPATHY [None]
  - CONDITION AGGRAVATED [None]
  - EJECTION FRACTION DECREASED [None]
